FAERS Safety Report 17908748 (Version 2)
Quarter: 2020Q3

REPORT INFORMATION
  Report Type: Spontaneous
  Country: DE (occurrence: DE)
  Receive Date: 20200617
  Receipt Date: 20200702
  Transmission Date: 20201103
  Serious: Yes (Disabling, Other)
  Sender: FDA-Public Use
  Company Number: DE-BAYER-2020-122127

PATIENT
  Age: 80 Year
  Sex: Female
  Weight: 84 kg

DRUGS (1)
  1. GADOVIST [Suspect]
     Active Substance: GADOBUTROL
     Dosage: 8 ML, ONCE
     Dates: start: 20200613

REACTIONS (4)
  - Nausea [None]
  - Unresponsive to stimuli [None]
  - Brain injury [None]
  - Anaphylactic shock [None]

NARRATIVE: CASE EVENT DATE: 20200613
